FAERS Safety Report 9135089 (Version 1)
Quarter: 2013Q1

REPORT INFORMATION
  Report Type: Spontaneous
  Country: US (occurrence: US)
  Receive Date: 20130304
  Receipt Date: 20130304
  Transmission Date: 20140127
  Serious: Yes (Other)
  Sender: FDA-Public Use
  Company Number: US-PURDUE-USA-2004-0016332

PATIENT
  Sex: 0

DRUGS (3)
  1. OXYCONTIN TABLETS [Suspect]
     Indication: PRODUCT USED FOR UNKNOWN INDICATION
     Dosage: UNK UNK, UNK
  2. ALCOHOL [Suspect]
     Indication: ALCOHOLISM
     Route: 048
  3. UNKNOWN [Concomitant]
     Indication: PRODUCT USED FOR UNKNOWN INDICATION
     Dosage: UNK UNK, UNK

REACTIONS (4)
  - Polysubstance dependence [Unknown]
  - Drug abuse [Recovered/Resolved]
  - Brain injury [Unknown]
  - Convulsion [Unknown]
